FAERS Safety Report 7926712-0 (Version None)
Quarter: 2011Q4

REPORT INFORMATION
  Report Type: 
  Country: None (occurrence: None)
  Receive Date: 20111116
  Receipt Date: 20111102
  Transmission Date: 20120403
  Serious: Yes (Other)
  Sender: FDA-Public Use
  Company Number: 2011MA015968

PATIENT
  Sex: Male

DRUGS (1)
  1. DIGOXIN [Suspect]
     Indication: CARDIAC DISORDER
     Dosage: 0.125 MG;QD
     Dates: start: 20080110

REACTIONS (7)
  - CEREBROVASCULAR ACCIDENT [None]
  - HYPOTENSION [None]
  - VOMITING [None]
  - DIZZINESS [None]
  - MENTAL DISORDER [None]
  - ECONOMIC PROBLEM [None]
  - NAUSEA [None]
